FAERS Safety Report 5047405-6 (Version None)
Quarter: 2006Q3

REPORT INFORMATION
  Report Type: 
  Country: None (occurrence: None)
  Receive Date: 20060711
  Receipt Date: 20060630
  Transmission Date: 20061208
  Serious: Yes (Hospitalization)
  Sender: FDA-Public Use
  Company Number: AR-JNJFOC-20060602970

PATIENT
  Age: 7 Decade
  Sex: Female
  Weight: 70 kg

DRUGS (2)
  1. REMICADE [Suspect]
  2. REMICADE [Suspect]
     Indication: RHEUMATOID ARTHRITIS

REACTIONS (4)
  - HYPOTENSION [None]
  - MENINGITIS TUBERCULOUS [None]
  - MYOCARDIAL INFARCTION [None]
  - VOMITING [None]
